FAERS Safety Report 12659293 (Version 2)
Quarter: 2016Q3

REPORT INFORMATION
  Report Type: Report from Study
  Country: TH (occurrence: TH)
  Receive Date: 20160817
  Receipt Date: 20160923
  Transmission Date: 20161109
  Serious: Yes (Hospitalization, Other)
  Sender: FDA-Public Use
  Company Number: TH-ROCHE-1812726

PATIENT
  Age: 55 Year
  Sex: Male

DRUGS (3)
  1. LUCENTIS [Suspect]
     Active Substance: RANIBIZUMAB
     Indication: DIABETIC RETINAL OEDEMA
     Dosage: 0.5 MG, UNK
     Route: 050
     Dates: start: 20160729
  2. POLY-OPH [Concomitant]
     Indication: INFECTION PROPHYLAXIS
     Dosage: UNK UNK, QID
     Route: 065
     Dates: start: 20160729
  3. LUCENTIS [Suspect]
     Active Substance: RANIBIZUMAB
     Dosage: 0.5 MG, UNK
     Route: 050
     Dates: start: 20160809, end: 20160809

REACTIONS (9)
  - Endophthalmitis [Unknown]
  - Eye irritation [Unknown]
  - Vision blurred [Unknown]
  - Ocular hyperaemia [Unknown]
  - Eye pain [Unknown]
  - Injection site pain [Unknown]
  - Inappropriate schedule of drug administration [Unknown]
  - Injection site irritation [Unknown]
  - Visual acuity reduced [Unknown]

NARRATIVE: CASE EVENT DATE: 20160809
